FAERS Safety Report 14625300 (Version 1)
Quarter: 2018Q1

REPORT INFORMATION
  Report Type: Spontaneous
  Country: US (occurrence: US)
  Receive Date: 20180312
  Receipt Date: 20180312
  Transmission Date: 20180509
  Serious: No
  Sender: FDA-Public Use
  Company Number: US-ENDO PHARMACEUTICALS INC-2017-002721

PATIENT
  Age: 73 Year
  Sex: Female

DRUGS (4)
  1. HYDROCHLOROTHIAZIDE. [Concomitant]
     Active Substance: HYDROCHLOROTHIAZIDE
     Indication: HYPERTENSION
  2. METHOCARBAMOL TABLETS 500MG [Suspect]
     Active Substance: METHOCARBAMOL
     Indication: MUSCLE SPASMS
     Dosage: 500 MG, TID
     Route: 048
     Dates: start: 20170428, end: 20170429
  3. LOSARTAN. [Concomitant]
     Active Substance: LOSARTAN
     Indication: HYPERTENSION
  4. SIMVASTATIN. [Concomitant]
     Active Substance: SIMVASTATIN
     Indication: BLOOD CHOLESTEROL INCREASED

REACTIONS (5)
  - Abdominal discomfort [Recovering/Resolving]
  - Vision blurred [Recovered/Resolved]
  - Dizziness [Recovered/Resolved]
  - Malaise [Unknown]
  - Vomiting [Unknown]

NARRATIVE: CASE EVENT DATE: 20170429
